FAERS Safety Report 8445885-7 (Version None)
Quarter: 2012Q2

REPORT INFORMATION
  Report Type: 
  Country: None (occurrence: None)
  Receive Date: 20120323
  Receipt Date: 20110906
  Transmission Date: 20120825
  Serious: Yes (Other)
  Sender: FDA-Public Use
  Company Number: 163-21880-11090843

PATIENT
  Age: 65 Year
  Sex: Female

DRUGS (11)
  1. DIOVAN [Concomitant]
  2. REVLIMID [Suspect]
     Indication: MULTIPLE MYELOMA
     Dosage: 10 MG, DAILY X 21 DAYS, PO
     Route: 048
     Dates: start: 20110401
  3. ASPIRIN [Concomitant]
  4. LORAZEPAM [Concomitant]
  5. TYLENOL PM (TYLENOL PM) [Concomitant]
  6. LYRICA [Concomitant]
  7. OMNIPRED (PREDNISOLONE ACETATE) [Concomitant]
  8. ATENOLOL [Concomitant]
  9. KETOROLAC TROMETHAMINE [Concomitant]
  10. PEPCID [Concomitant]
  11. DEXAMETHASONE [Concomitant]

REACTIONS (2)
  - HEADACHE [None]
  - CATARACT [None]
